FAERS Safety Report 7967140-1 (Version None)
Quarter: 2011Q4

REPORT INFORMATION
  Report Type: 
  Country: None (occurrence: None)
  Receive Date: 20111209
  Receipt Date: 20111202
  Transmission Date: 20120403
  Serious: Yes (Other)
  Sender: FDA-Public Use
  Company Number: TR-COVIDIEN/TYCO HEALTHCARE/MALLINCKRODT-T201102840

PATIENT
  Sex: Female

DRUGS (2)
  1. PROPYLTHIOURACIL [Concomitant]
     Indication: THYROID THERAPY
  2. SODIUM IODIDE I 131 [Suspect]
     Indication: TOXIC NODULAR GOITRE
     Dosage: 740 MBQ, SINGLE

REACTIONS (1)
  - HYPOTHYROIDISM [None]
